FAERS Safety Report 23598949 (Version 1)
Quarter: 2024Q1

REPORT INFORMATION
  Report Type: Spontaneous
  Country: CA (occurrence: CA)
  Receive Date: 20240306
  Receipt Date: 20240306
  Transmission Date: 20240409
  Serious: Yes (Life-Threatening, Hospitalization, Other)
  Sender: FDA-Public Use
  Company Number: CA-CELLTRION INC.-2024CA004972

PATIENT

DRUGS (19)
  1. RITUXIMAB [Suspect]
     Active Substance: RITUXIMAB
     Indication: Diffuse large B-cell lymphoma
     Dosage: 596 MILLIGRAM
     Route: 042
  2. PARAPLATIN [Suspect]
     Active Substance: CARBOPLATIN
     Indication: Diffuse large B-cell lymphoma
     Dosage: 460.0 MILLIGRAM
  3. IFEX [Suspect]
     Active Substance: IFOSFAMIDE
     Indication: Diffuse large B-cell lymphoma
     Dosage: 2501.0 MILLIGRAM
     Route: 042
  4. ETOPOSIDE [Suspect]
     Active Substance: ETOPOSIDE
     Indication: Diffuse large B-cell lymphoma
     Dosage: 159 MILLIGRAM
     Route: 042
  5. CHOLECALCIFEROL [Concomitant]
     Active Substance: CHOLECALCIFEROL
  6. CYCLOPHOSPHAMIDE [Concomitant]
     Active Substance: CYCLOPHOSPHAMIDE
  7. CYTARABINE [Concomitant]
     Active Substance: CYTARABINE
  8. DOXORUBICIN HYDROCHLORIDE [Concomitant]
     Active Substance: DOXORUBICIN HYDROCHLORIDE
  9. ESCITALOPRAM [Concomitant]
     Active Substance: ESCITALOPRAM OXALATE
  10. GABAPENTIN [Concomitant]
     Active Substance: GABAPENTIN
  11. LEUCOVORIN CALCIUM [Concomitant]
     Active Substance: LEUCOVORIN CALCIUM
  12. METHOTREXATE [Concomitant]
     Active Substance: METHOTREXATE
  13. OLANZAPINE [Concomitant]
     Active Substance: OLANZAPINE
  14. ONDANSETRON [Concomitant]
     Active Substance: ONDANSETRON
  15. PEGFILGRASTIM [Concomitant]
     Active Substance: PEGFILGRASTIM
  16. POLYETHYLENE GLYCOLS [Concomitant]
     Active Substance: POLYETHYLENE GLYCOLS
  17. POTASSIUM CHLORIDE [Concomitant]
     Active Substance: POTASSIUM CHLORIDE
  18. SODIUM BICARBONATE [Concomitant]
     Active Substance: SODIUM BICARBONATE
  19. VINCRISTINE SULFATE [Concomitant]
     Active Substance: VINCRISTINE SULFATE

REACTIONS (4)
  - Transfusion [Recovering/Resolving]
  - Febrile neutropenia [Recovering/Resolving]
  - Pseudomonal bacteraemia [Recovering/Resolving]
  - Overdose [Unknown]
